FAERS Safety Report 6616326-7 (Version None)
Quarter: 2010Q1

REPORT INFORMATION
  Report Type: 
  Country: None (occurrence: None)
  Receive Date: 20100305
  Receipt Date: 20100225
  Transmission Date: 20100710
  Serious: Yes (Other)
  Sender: FDA-Public Use
  Company Number: US-AMGEN-QUU392068

PATIENT
  Sex: Female
  Weight: 108.8 kg

DRUGS (3)
  1. NPLATE [Suspect]
     Indication: IDIOPATHIC THROMBOCYTOPENIC PURPURA
     Route: 058
     Dates: start: 20081114, end: 20090924
  2. LISINOPRIL [Concomitant]
     Dates: end: 20081201
  3. PREDNISONE [Concomitant]
     Dates: end: 20081201

REACTIONS (1)
  - THERAPEUTIC RESPONSE DECREASED [None]
